FAERS Safety Report 11069685 (Version 1)
Quarter: 2015Q2

REPORT INFORMATION
  Report Type: Spontaneous
  Country: FR (occurrence: FR)
  Receive Date: 20150427
  Receipt Date: 20150427
  Transmission Date: 20150821
  Serious: Yes (Other)
  Sender: FDA-Public Use
  Company Number: FR-MYLANLABS-2015M1012040

PATIENT

DRUGS (1)
  1. IBUPROFENE MYLAN 20 MG/ML ENFANTS ET NOURRISSONS SANS SUCRE [Suspect]
     Active Substance: IBUPROFEN
     Indication: HYPERPYREXIA
     Dosage: 1 DF, ONCE
     Dates: start: 20150404, end: 20150404

REACTIONS (3)
  - Blister [Recovered/Resolved]
  - Swelling face [Recovered/Resolved]
  - Erythema [Recovered/Resolved]

NARRATIVE: CASE EVENT DATE: 20150404
